FAERS Safety Report 19478364 (Version 2)
Quarter: 2023Q2

REPORT INFORMATION
  Report Type: Report from Study
  Country: GB (occurrence: IE)
  Receive Date: 20210630
  Receipt Date: 20230622
  Transmission Date: 20230722
  Serious: Yes (Hospitalization)
  Sender: FDA-Public Use
  Company Number: GB-BAYER-2020-131101

PATIENT
  Age: 88 Year
  Sex: Male

DRUGS (19)
  1. AFLIBERCEPT [Suspect]
     Active Substance: AFLIBERCEPT
     Indication: Neovascular age-related macular degeneration
     Dosage: 50 UL, Q4W; RIGHT EYE
     Route: 031
     Dates: start: 20200625, end: 20200625
  2. AFLIBERCEPT [Suspect]
     Active Substance: AFLIBERCEPT
     Dosage: 50 UL, Q4W; RIGHT EYE
     Route: 031
     Dates: start: 20200514, end: 20200514
  3. AFLIBERCEPT [Suspect]
     Active Substance: AFLIBERCEPT
     Dosage: 50 UL, Q4W; RIGHT EYE
     Route: 031
     Dates: start: 20200416, end: 20200416
  4. AFLIBERCEPT [Suspect]
     Active Substance: AFLIBERCEPT
     Dosage: 50 UL, Q8W; RIGHT EYE
     Route: 031
     Dates: start: 20200813, end: 20200813
  5. AFLIBERCEPT [Suspect]
     Active Substance: AFLIBERCEPT
     Dosage: 50 UL, Q10W; RIGHT EYE
     Route: 031
     Dates: start: 20201008, end: 20201008
  6. AFLIBERCEPT [Suspect]
     Active Substance: AFLIBERCEPT
     Dosage: 50 UL, Q12W; RIGHT EYE
     Route: 031
     Dates: start: 20201217, end: 20201217
  7. AFLIBERCEPT [Suspect]
     Active Substance: AFLIBERCEPT
     Dosage: 50 UL, 1X; RIGHT EYE
     Route: 031
     Dates: start: 20210311, end: 20210311
  8. ASPIRIN [Concomitant]
     Active Substance: ASPIRIN
     Indication: Hypertension
     Dosage: 75 MG
     Route: 065
     Dates: end: 20200707
  9. ASPIRIN [Concomitant]
     Active Substance: ASPIRIN
     Dosage: 75 MG
     Route: 065
     Dates: end: 20200714
  10. ATORVASTATIN [Concomitant]
     Active Substance: ATORVASTATIN
     Indication: Hypertension
     Dosage: 40 MG
     Route: 065
  11. ATORVASTATIN [Concomitant]
     Active Substance: ATORVASTATIN
     Dosage: 4.5 MG
     Route: 065
  12. BISOPROLOL [Concomitant]
     Active Substance: BISOPROLOL
     Indication: Hypertension
     Dosage: 5 MG
     Route: 065
  13. ESOMEPRAZOLE [Concomitant]
     Active Substance: ESOMEPRAZOLE
     Indication: Prophylaxis
     Dosage: 40 MG
     Route: 065
     Dates: end: 202009
  14. ESOMEPRAZOLE [Concomitant]
     Active Substance: ESOMEPRAZOLE
     Dosage: 20 MG, QD
     Route: 065
     Dates: start: 202009
  15. ISOSORBIDE MONONITRATE [Concomitant]
     Active Substance: ISOSORBIDE MONONITRATE
     Indication: Hypertension
     Dosage: 30 MG
     Route: 065
     Dates: start: 20200706
  16. ISOSORBIDE MONONITRATE [Concomitant]
     Active Substance: ISOSORBIDE MONONITRATE
     Dosage: 60 MG
     Route: 065
     Dates: start: 20200705, end: 20200705
  17. TAMSULOSIN [Concomitant]
     Active Substance: TAMSULOSIN
     Indication: Prostatic disorder
     Dosage: 400 UG
     Route: 065
  18. GLICLAZIDE [Concomitant]
     Active Substance: GLICLAZIDE
     Indication: Type 2 diabetes mellitus
     Dosage: 60 UNK, QD (MMG)
     Route: 065
     Dates: start: 202009
  19. DUTASTERIDE [Concomitant]
     Active Substance: DUTASTERIDE
     Indication: Prostatomegaly
     Dosage: 0.5 MG
     Route: 065

REACTIONS (9)
  - Streptococcal bacteraemia [Recovered/Resolved]
  - Oxygen saturation decreased [Recovered/Resolved]
  - Facial paralysis [Recovered/Resolved]
  - Muscular weakness [Recovered/Resolved]
  - Dysarthria [Recovered/Resolved]
  - Pemphigoid [Recovered/Resolved]
  - Fall [Recovered/Resolved]
  - Pemphigoid [Not Recovered/Not Resolved]
  - Urinary tract infection [Recovered/Resolved]

NARRATIVE: CASE EVENT DATE: 20200528
